FAERS Safety Report 23367355 (Version 1)
Quarter: 2024Q1

REPORT INFORMATION
  Report Type: Spontaneous
  Country: GB (occurrence: GB)
  Receive Date: 20240104
  Receipt Date: 20240104
  Transmission Date: 20240410
  Serious: Yes (Other)
  Sender: FDA-Public Use
  Company Number: GB-MHRA-MED-202309221721575120-BFLKW

PATIENT
  Age: 71 Year
  Sex: Female
  Weight: 95 kg

DRUGS (1)
  1. AZITHROMYCIN [Suspect]
     Active Substance: AZITHROMYCIN
     Indication: Bronchiectasis
     Dosage: 250 MG THREE TIMES A WEEK
     Dates: start: 20230707, end: 20230830

REACTIONS (3)
  - Deafness [Recovered/Resolved]
  - Viral labyrinthitis [Recovered/Resolved]
  - Off label use [Unknown]

NARRATIVE: CASE EVENT DATE: 20230707
